FAERS Safety Report 4500465-0 (Version None)
Quarter: 2004Q3

REPORT INFORMATION
  Report Type: 
  Country: None (occurrence: None)
  Receive Date: 20040928
  Receipt Date: 20040804
  Transmission Date: 20050211
  Serious: No
  Sender: FDA-Public Use
  Company Number: 04P-163-0269246-00

PATIENT
  Age: 62 Year
  Sex: Female
  Weight: 87.9978 kg

DRUGS (10)
  1. HUMIRA [Suspect]
     Indication: RHEUMATOID ARTHRITIS
     Dosage: 40 MG, 1 IN 2 WK, SUBCUTANEOUS
     Route: 058
     Dates: start: 20040803
  2. SULFAZALADINE [Concomitant]
  3. HYDROXYCHLOROQUINE PHOSPHATE [Concomitant]
  4. HYDROCHLOROTHIAZIDE [Concomitant]
  5. CONJUGATED ESTROGEN [Concomitant]
  6. MEDIPROGESTERONE [Concomitant]
  7. LEVISIN [Concomitant]
  8. ENALAPRIL MALEATE [Concomitant]
  9. ALPRAZOLAM [Concomitant]
  10. FLUOXETINE HYDROCHLORIDE [Concomitant]

REACTIONS (1)
  - HEADACHE [None]
